FAERS Safety Report 9886844 (Version 1)
Quarter: 2014Q1

REPORT INFORMATION
  Report Type: Spontaneous
  Country: US (occurrence: US)
  Receive Date: 20140210
  Receipt Date: 20140210
  Transmission Date: 20141002
  Serious: No
  Sender: FDA-Public Use
  Company Number: US-GILEAD-2014-0094139

PATIENT
  Age: 61 Year
  Sex: Male

DRUGS (11)
  1. LETAIRIS [Suspect]
     Indication: PULMONARY HYPERTENSION
     Dosage: 5 MG, QD
     Route: 048
     Dates: start: 20131212, end: 20131217
  2. SILDENAFIL [Concomitant]
  3. BUMETANIDE [Concomitant]
  4. CHLORTHALIDONE [Concomitant]
  5. SPIRONOLACTONE [Concomitant]
  6. MONTELUKAST [Concomitant]
  7. TIOTROPIUM [Concomitant]
  8. IPRATROPIUM/ALBUTEROL [Concomitant]
  9. OMEPRAZOLE [Concomitant]
  10. FAMOTIDINE [Concomitant]
  11. LASIX                              /00032601/ [Concomitant]
     Dosage: 20 MG, UNK

REACTIONS (2)
  - Dyspnoea [Unknown]
  - Oedema [Unknown]
